FAERS Safety Report 4541552-0 (Version None)
Quarter: 2004Q4

REPORT INFORMATION
  Report Type: 
  Country: None (occurrence: None)
  Receive Date: 20041227
  Receipt Date: 20041215
  Transmission Date: 20050328
  Serious: Yes (Death, Hospitalization, Other)
  Sender: FDA-Public Use
  Company Number: 2004110956

PATIENT
  Age: 85 Year
  Sex: Female

DRUGS (5)
  1. LIPITOR [Suspect]
     Indication: TYPE IIA HYPERLIPIDAEMIA
     Dosage: 10 MG (10 MG, 1 IN 1 D), ORAL
     Route: 048
     Dates: start: 20010521, end: 20040827
  2. MOSAPRIDE CITRATE (MOSAPRIDE CITRATE) [Concomitant]
  3. ISOSORBIDE DINITRATE [Concomitant]
  4. STOMACHIC MIXTURE /THA/ (CARDAMOM OIL, HERBAL EXTRACTS NOS, RHUBARB TI [Concomitant]
  5. DIAZEPAM [Concomitant]

REACTIONS (7)
  - ANOREXIA [None]
  - CONVULSION [None]
  - DRUG INEFFECTIVE [None]
  - HEADACHE [None]
  - MYOCARDIAL INFARCTION [None]
  - PYREXIA [None]
  - URINARY TRACT INFECTION [None]
